FAERS Safety Report 6414600-0 (Version None)
Quarter: 2009Q4

REPORT INFORMATION
  Report Type: 
  Country: None (occurrence: None)
  Receive Date: 20091021
  Receipt Date: 20091012
  Transmission Date: 20100525
  Serious: Yes (Other)
  Sender: FDA-Public Use
  Company Number: SPV1-2009-01800

PATIENT
  Age: 10 Year
  Sex: Female
  Weight: 44 kg

DRUGS (2)
  1. DAYTRANA [Suspect]
     Indication: ATTENTION DEFICIT/HYPERACTIVITY DISORDER
     Dosage: 10 MG, 1X/DAY:QD, TRANSDERMAL
     Route: 062
     Dates: start: 20090902, end: 20090905
  2. ZYRTEC [Concomitant]

REACTIONS (6)
  - CONFUSIONAL STATE [None]
  - DISORIENTATION [None]
  - HEADACHE [None]
  - INCOHERENT [None]
  - NEUROLOGICAL EXAMINATION ABNORMAL [None]
  - VOMITING [None]
